FAERS Safety Report 25684489 (Version 1)
Quarter: 2025Q3

REPORT INFORMATION
  Report Type: Spontaneous
  Country: US (occurrence: US)
  Receive Date: 20250815
  Receipt Date: 20250815
  Transmission Date: 20251021
  Serious: No
  Sender: BAUSCH AND LOMB
  Company Number: US-BAUSCHBL-2025BNL013963

PATIENT
  Age: 60 Year
  Sex: Male

DRUGS (1)
  1. DORZOLAMIDE HYDROCHLORIDE\TIMOLOL MALEATE [Suspect]
     Active Substance: DORZOLAMIDE HYDROCHLORIDE\TIMOLOL MALEATE
     Indication: Postoperative care
     Route: 065

REACTIONS (4)
  - Pain [Unknown]
  - Circumstance or information capable of leading to medication error [Unknown]
  - Product delivery mechanism issue [Unknown]
  - Product physical issue [Unknown]
